FAERS Safety Report 17802594 (Version 1)
Quarter: 2020Q2

REPORT INFORMATION
  Report Type: Spontaneous
  Country: DE (occurrence: DE)
  Receive Date: 20200519
  Receipt Date: 20200519
  Transmission Date: 20200714
  Serious: Yes (Hospitalization)
  Sender: FDA-Public Use
  Company Number: DE-TORRENT-00017585

PATIENT
  Age: 79 Year
  Sex: Female

DRUGS (4)
  1. DEKRISTOLMIN [Concomitant]
     Active Substance: CHOLECALCIFEROL
     Indication: PRODUCT USED FOR UNKNOWN INDICATION
     Dosage: 20.000 IE/, 1-0-0-0
  2. SERTRALINE [Suspect]
     Active Substance: SERTRALINE HYDROCHLORIDE
     Indication: PRODUCT USED FOR UNKNOWN INDICATION
     Dosage: 25 MG, 0-0-1-0
  3. LEVOTHYROXIN-SODIUM [Concomitant]
     Indication: PRODUCT USED FOR UNKNOWN INDICATION
     Dosage: 50 G, 1-0-0-0
  4. OLMETEC [Concomitant]
     Active Substance: OLMESARTAN MEDOXOMIL
     Indication: PRODUCT USED FOR UNKNOWN INDICATION
     Dosage: 20 MG, 1-0-0-0

REACTIONS (6)
  - Restlessness [Unknown]
  - Sensory disturbance [Unknown]
  - Restless legs syndrome [Unknown]
  - Tinnitus [Unknown]
  - General physical health deterioration [Unknown]
  - Depressed mood [Unknown]
